FAERS Safety Report 15334205 (Version 2)
Quarter: 2018Q3

REPORT INFORMATION
  Report Type: Spontaneous
  Country: US (occurrence: US)
  Receive Date: 20180830
  Receipt Date: 20180928
  Transmission Date: 20181010
  Serious: No
  Sender: FDA-Public Use
  Company Number: US-ASTRAZENECA-2018SE32394

PATIENT
  Age: 26277 Day
  Sex: Female
  Weight: 104.3 kg

DRUGS (4)
  1. PROAIR RESPICLICK [Concomitant]
     Active Substance: ALBUTEROL SULFATE
     Indication: ASTHMA
     Route: 055
     Dates: start: 20180307
  2. PREDNISONE. [Concomitant]
     Active Substance: PREDNISONE
     Indication: ASTHMA
     Dates: start: 20180307
  3. SYMBICORT [Suspect]
     Active Substance: BUDESONIDE\FORMOTEROL FUMARATE DIHYDRATE
     Indication: ASTHMA
     Dosage: 160/4.5 MCG 2 PUFFS TWICE A DAY
     Route: 055
     Dates: start: 20180309
  4. SYMBICORT [Suspect]
     Active Substance: BUDESONIDE\FORMOTEROL FUMARATE DIHYDRATE
     Indication: ASTHMA
     Dosage: 160/4.5 MCG 2 PUFFS TWICE A DAY
     Route: 055
     Dates: start: 20180725, end: 20180808

REACTIONS (10)
  - Malaise [Unknown]
  - Visual acuity reduced [Unknown]
  - Eye disorder [Unknown]
  - Extra dose administered [Not Recovered/Not Resolved]
  - Device malfunction [Not Recovered/Not Resolved]
  - Headache [Unknown]
  - Nausea [Unknown]
  - Off label use [Unknown]
  - Dysphonia [Unknown]
  - Dyspnoea [Unknown]

NARRATIVE: CASE EVENT DATE: 20180309
